FAERS Safety Report 15355662 (Version 1)
Quarter: 2018Q3

REPORT INFORMATION
  Report Type: Spontaneous
  Country: CN (occurrence: CN)
  Receive Date: 20180906
  Receipt Date: 20180906
  Transmission Date: 20181010
  Serious: Yes (Other)
  Sender: FDA-Public Use
  Company Number: CN-PURDUE-GBR-2018-0058939

PATIENT
  Age: 75 Year
  Sex: Male
  Weight: 42 kg

DRUGS (1)
  1. MS CONTIN [Suspect]
     Active Substance: MORPHINE SULFATE
     Indication: ANALGESIC THERAPY
     Dosage: 30 MG, BID
     Route: 048
     Dates: start: 20180708, end: 20180708

REACTIONS (3)
  - Somnolence [Recovering/Resolving]
  - Breath sounds abnormal [Recovering/Resolving]
  - Miosis [Recovering/Resolving]

NARRATIVE: CASE EVENT DATE: 20180709
